FAERS Safety Report 22817686 (Version 5)
Quarter: 2023Q4

REPORT INFORMATION
  Report Type: Spontaneous
  Country: JP (occurrence: JP)
  Receive Date: 20230813
  Receipt Date: 20231115
  Transmission Date: 20240110
  Serious: No
  Sender: FDA-Public Use
  Company Number: JP-BEH-2023161780

PATIENT
  Age: 47 Year
  Sex: Female
  Weight: 61.8 kg

DRUGS (9)
  1. HIZENTRA [Suspect]
     Active Substance: HUMAN IMMUNOGLOBULIN G
     Indication: Chronic inflammatory demyelinating polyradiculoneuropathy
     Dosage: 24 GRAM/120ML, QW
     Route: 058
     Dates: start: 20220124
  2. HIZENTRA [Suspect]
     Active Substance: HUMAN IMMUNOGLOBULIN G
     Dosage: UNK
     Route: 058
     Dates: start: 20200225, end: 202112
  3. PREDNISOLONE [Suspect]
     Active Substance: PREDNISOLONE
     Indication: Chronic inflammatory demyelinating polyradiculoneuropathy
     Dosage: 7 MILLIGRAM, QD
     Route: 048
  4. ALENDRONATE [Concomitant]
     Active Substance: ALENDRONATE SODIUM
     Indication: Osteoporosis prophylaxis
     Dosage: 35 MILLIGRAM, QW
     Route: 048
     Dates: start: 20220122
  5. VONOPRAZAN FUMARATE [Concomitant]
     Active Substance: VONOPRAZAN FUMARATE
     Indication: Prophylaxis
     Dosage: 10 MILLIGRAM, QD
     Route: 048
     Dates: start: 20220118
  6. VONOPRAZAN FUMARATE [Concomitant]
     Active Substance: VONOPRAZAN FUMARATE
     Indication: Ulcer
  7. KETOPROFEN [Concomitant]
     Active Substance: KETOPROFEN
     Indication: Pain in extremity
     Dosage: 40 MILLIGRAM, QD
     Route: 048
     Dates: start: 20200207
  8. VFEND [Concomitant]
     Active Substance: VORICONAZOLE
     Indication: Aspergillus infection
     Dosage: 50 MILLIGRAM, BID
     Route: 048
     Dates: start: 20220114
  9. FERRIC CITRATE ANHYDROUS [Concomitant]
     Active Substance: FERRIC CITRATE ANHYDROUS
     Indication: Iron deficiency anaemia
     Dosage: 500 MILLIGRAM, QD
     Route: 048
     Dates: start: 20220627

REACTIONS (14)
  - Diplopia [Not Recovered/Not Resolved]
  - Eyelid disorder [Not Recovered/Not Resolved]
  - Antiacetylcholine receptor antibody positive [Not Recovered/Not Resolved]
  - Strabismus [Not Recovered/Not Resolved]
  - Eyelid ptosis [Not Recovered/Not Resolved]
  - Eyelid irritation [Not Recovered/Not Resolved]
  - Apraxia [Not Recovered/Not Resolved]
  - Eyelid retraction [Not Recovered/Not Resolved]
  - Lid lag [Not Recovered/Not Resolved]
  - Eyelid retraction [Not Recovered/Not Resolved]
  - Anti-thyroid antibody positive [Unknown]
  - Iron deficiency anaemia [Recovering/Resolving]
  - Aspergillus test positive [Not Recovered/Not Resolved]
  - Misleading laboratory test result [Unknown]

NARRATIVE: CASE EVENT DATE: 20210803
